FAERS Safety Report 7583496-6 (Version None)
Quarter: 2011Q2

REPORT INFORMATION
  Report Type: 
  Country: None (occurrence: None)
  Receive Date: 20110630
  Receipt Date: 20110627
  Transmission Date: 20111010
  Serious: Yes (Hospitalization)
  Sender: FDA-Public Use
  Company Number: FR-ROCHE-772674

PATIENT
  Sex: Female

DRUGS (11)
  1. FOSAVANCE [Concomitant]
     Route: 048
  2. LERCANIDIPINE [Concomitant]
     Route: 048
  3. LANTUS [Concomitant]
     Dosage: START DATE : FOR A LONG TIME
     Route: 058
  4. ESCITALOPRAM OXALATE [Interacting]
     Route: 048
  5. IRBESARTAN [Concomitant]
     Dosage: START DATE : FOR A LONG TIME
     Route: 048
  6. PROPRANOLOL [Concomitant]
     Dosage: START DATE : FOR A LONG TIME
     Route: 048
  7. PREVISCAN [Interacting]
     Dosage: START DATE : FOR A LONG TIME
     Route: 048
     Dates: end: 20110316
  8. ROCEPHIN [Suspect]
     Indication: LUNG INFECTION
     Route: 042
     Dates: start: 20110315, end: 20110316
  9. PREDNISONE [Concomitant]
     Route: 048
  10. HUMALOG [Concomitant]
     Dosage: START DATE : FOR A LONG TIME
     Route: 058
  11. OMEPRAZOLE [Concomitant]
     Route: 048

REACTIONS (2)
  - GASTROINTESTINAL HAEMORRHAGE [None]
  - DRUG INTERACTION [None]
